FAERS Safety Report 5832799-1 (Version None)
Quarter: 2008Q3

REPORT INFORMATION
  Report Type: 
  Country: None (occurrence: None)
  Receive Date: 20080804
  Receipt Date: 20080725
  Transmission Date: 20090109
  Serious: Yes (Other)
  Sender: FDA-Public Use
  Company Number: BR-ROCHE-576930

PATIENT
  Sex: Female

DRUGS (1)
  1. ROACUTAN [Suspect]
     Indication: DRUG USE FOR UNKNOWN INDICATION
     Dosage: START DATES, DOSE, STRENGTH, FORMULATION, FREQUENCY, LOT NUMBER REPORTED AS UNKNOWN/UNSPECIFIED
     Route: 065

REACTIONS (1)
  - NEOPLASM SKIN [None]
